FAERS Safety Report 9353648 (Version 1)
Quarter: 2013Q2

REPORT INFORMATION
  Report Type: Spontaneous
  Country: US (occurrence: None)
  Receive Date: 20130617
  Receipt Date: 20130617
  Transmission Date: 20140414
  Serious: Yes (Life-Threatening, Hospitalization, Disabling, Other)
  Sender: FDA-Public Use
  Company Number: None

PATIENT
  Sex: 0

DRUGS (2)
  1. TACROLIMUS [Suspect]
  2. PROGRAF [Concomitant]

REACTIONS (2)
  - Drug level changed [None]
  - Transplant rejection [None]
